FAERS Safety Report 8357143-X (Version None)
Quarter: 2012Q2

REPORT INFORMATION
  Report Type: 
  Country: None (occurrence: None)
  Receive Date: 20120514
  Receipt Date: 20120503
  Transmission Date: 20120825
  Serious: Yes (Hospitalization, Other)
  Sender: FDA-Public Use
  Company Number: US-BAYER-2012-032426

PATIENT
  Age: 41 Year
  Sex: Female
  Weight: 68.027 kg

DRUGS (12)
  1. VALIUM [Concomitant]
     Dosage: 10 MG, UNK
     Route: 048
     Dates: start: 20091208
  2. IBUPROFEN [Concomitant]
     Dosage: UNK
     Dates: start: 20000101, end: 20100101
  3. ASCORBIC ACID [Concomitant]
  4. LIDOCAINE W/PRILOCAINE [Concomitant]
     Dosage: UNK
     Route: 061
     Dates: start: 20091208
  5. CALCIUM [Concomitant]
     Dosage: 1 DAILY
     Route: 048
  6. YAZ [Suspect]
     Indication: PREMENSTRUAL SYNDROME
     Dosage: UNK
     Dates: start: 20090812, end: 20100309
  7. XANAX [Concomitant]
     Dosage: 0.5 MG, HS, AS NEEDED
     Route: 048
     Dates: start: 20091204
  8. YAZ [Suspect]
     Indication: MENORRHAGIA
  9. CALCIUM [Concomitant]
     Dosage: 500 MG, DAILY
     Route: 048
  10. MULTI-VITAMIN [Concomitant]
     Dosage: 1 DAILY
     Route: 048
  11. IRON [Concomitant]
  12. VITAMIN D [Concomitant]
     Dosage: 1000 IU DAILY
     Route: 048

REACTIONS (12)
  - HAEMANGIOMA OF LIVER [None]
  - PAIN [None]
  - DEEP VEIN THROMBOSIS [None]
  - PULMONARY EMBOLISM [None]
  - CHEST PAIN [None]
  - FATIGUE [None]
  - CHOLECYSTITIS CHRONIC [None]
  - INJURY [None]
  - PLEURAL EFFUSION [None]
  - CHOLELITHIASIS [None]
  - FOCAL NODULAR HYPERPLASIA [None]
  - DYSPNOEA [None]
